FAERS Safety Report 24763844 (Version 1)
Quarter: 2024Q4

REPORT INFORMATION
  Report Type: Spontaneous
  Country: CN (occurrence: CN)
  Receive Date: 20241223
  Receipt Date: 20241223
  Transmission Date: 20250115
  Serious: Yes (Disabling, Other)
  Sender: SANOFI AVENTIS
  Company Number: CN-SA-2024SA375436

PATIENT
  Age: 48 Year
  Sex: Female
  Weight: 85 kg

DRUGS (1)
  1. HYDROCHLOROTHIAZIDE\IRBESARTAN [Suspect]
     Active Substance: HYDROCHLOROTHIAZIDE\IRBESARTAN
     Indication: Hypertension
     Dosage: 162.5 MG QD
     Route: 048
     Dates: start: 20240620, end: 20241216

REACTIONS (1)
  - Prerenal failure [Not Recovered/Not Resolved]

NARRATIVE: CASE EVENT DATE: 20241213
